FAERS Safety Report 10618720 (Version 1)
Quarter: 2014Q4

REPORT INFORMATION
  Report Type: Spontaneous
  Country: RU (occurrence: None)
  Receive Date: 20141125
  Receipt Date: 20141125
  Transmission Date: 20150529
  Serious: Yes (Hospitalization, Other)
  Sender: FDA-Public Use
  Company Number: RU2014GSK007126

PATIENT
  Sex: Male

DRUGS (2)
  1. STOCRIN [Suspect]
     Active Substance: EFAVIRENZ
     Indication: HIV INFECTION
     Dates: start: 201405
  2. KIVEXA [Suspect]
     Active Substance: ABACAVIR SULFATE\LAMIVUDINE
     Indication: HIV INFECTION
     Dates: start: 201405

REACTIONS (7)
  - Haemoptysis [None]
  - Pneumonia [None]
  - Pulmonary embolism [None]
  - Pleural effusion [None]
  - Pyrexia [None]
  - Chest pain [None]
  - Rales [None]

NARRATIVE: CASE EVENT DATE: 20140923
